FAERS Safety Report 13287875 (Version 1)
Quarter: 2017Q1

REPORT INFORMATION
  Report Type: Spontaneous
  Country: SE (occurrence: SE)
  Receive Date: 20170302
  Receipt Date: 20170302
  Transmission Date: 20170428
  Serious: Yes (Other)
  Sender: FDA-Public Use
  Company Number: SE-TEVA-741823ISR

PATIENT
  Sex: Female

DRUGS (1)
  1. LAMOTRIGINE ACTAVIS [Suspect]
     Active Substance: LAMOTRIGINE
     Route: 065

REACTIONS (5)
  - Blister [Unknown]
  - Photosensitivity reaction [Unknown]
  - Urticaria [Unknown]
  - Visual impairment [Unknown]
  - Vitreous loss [Unknown]

NARRATIVE: CASE EVENT DATE: 2012
